FAERS Safety Report 7258405-X (Version None)
Quarter: 2011Q1

REPORT INFORMATION
  Report Type: 
  Country: None (occurrence: None)
  Receive Date: 20110129
  Receipt Date: 20100709
  Transmission Date: 20110831
  Serious: No
  Sender: FDA-Public Use
  Company Number: US-ABBOTT-10P-163-0656355-00

PATIENT
  Age: 53 Year
  Sex: Female

DRUGS (12)
  1. HUMIRA [Suspect]
     Indication: CROHN'S DISEASE
     Dosage: 2 HUMIRA PENS
     Dates: start: 20100708
  2. IBUPROFEN [Concomitant]
     Indication: PRODUCT USED FOR UNKNOWN INDICATION
  3. MESALAMINE [Concomitant]
     Indication: CROHN'S DISEASE
     Dosage: 4GMS/60ML ENEMA DAILY
     Route: 054
  4. HUMIRA [Suspect]
  5. FERROUS SULFATE TAB [Concomitant]
     Indication: PRODUCT USED FOR UNKNOWN INDICATION
  6. TRICOR [Concomitant]
     Indication: CARDIAC FAILURE
  7. DIOVAN [Concomitant]
     Indication: BLOOD CHOLESTEROL
  8. UNKNOWN MEDICATION [Concomitant]
     Indication: BLOOD PRESSURE
  9. LASIX [Concomitant]
     Indication: DIURETIC THERAPY
  10. ZOLOFT [Concomitant]
     Indication: PRODUCT USED FOR UNKNOWN INDICATION
  11. COREG [Concomitant]
     Indication: CARDIAC FAILURE
  12. SYNTHROID [Concomitant]
     Indication: PRODUCT USED FOR UNKNOWN INDICATION

REACTIONS (1)
  - INJECTION SITE PAIN [None]
